FAERS Safety Report 23864164 (Version 5)
Quarter: 2024Q4

REPORT INFORMATION
  Report Type: Spontaneous
  Country: US (occurrence: US)
  Receive Date: 20240516
  Receipt Date: 20241011
  Transmission Date: 20250115
  Serious: No
  Sender: JOHNSON AND JOHNSON
  Company Number: US-JNJFOC-20240542123

PATIENT
  Sex: Female

DRUGS (6)
  1. UPTRAVI [Suspect]
     Active Substance: SELEXIPAG
     Indication: Product used for unknown indication
     Route: 048
  2. UPTRAVI [Suspect]
     Active Substance: SELEXIPAG
     Route: 048
  3. AMBRISENTAN [Suspect]
     Active Substance: AMBRISENTAN
     Indication: Pulmonary hypertension
     Dosage: EXP: 31-OCT-2028
     Route: 048
     Dates: start: 20070817
  4. ADEMPAS [Suspect]
     Active Substance: RIOCIGUAT
     Route: 065
  5. WARFARIN [Concomitant]
     Active Substance: WARFARIN
  6. AMLODIPINE [Concomitant]
     Active Substance: AMLODIPINE BESYLATE

REACTIONS (13)
  - Nausea [Unknown]
  - Diarrhoea [Not Recovered/Not Resolved]
  - Pain in jaw [Unknown]
  - Muscle spasms [Unknown]
  - Dizziness [Unknown]
  - Abdominal pain upper [Unknown]
  - Myalgia [Unknown]
  - Headache [Not Recovered/Not Resolved]
  - Hypotension [Unknown]
  - Nervousness [Unknown]
  - Asthenia [Unknown]
  - Eye pain [Unknown]
  - Vision blurred [Unknown]
